APPROVED DRUG PRODUCT: CLINDAMYCIN PHOSPHATE AND BENZOYL PEROXIDE
Active Ingredient: BENZOYL PEROXIDE; CLINDAMYCIN PHOSPHATE
Strength: 2.5%;EQ 1.2% BASE
Dosage Form/Route: GEL;TOPICAL
Application: A205397 | Product #001 | TE Code: AB
Applicant: PADAGIS ISRAEL PHARMACEUTICALS LTD
Approved: Sep 9, 2019 | RLD: No | RS: No | Type: RX